FAERS Safety Report 7204599-1 (Version None)
Quarter: 2010Q4

REPORT INFORMATION
  Report Type: 
  Country: None (occurrence: None)
  Receive Date: 20101230
  Receipt Date: 20101223
  Transmission Date: 20110411
  Serious: Yes (Disabling)
  Sender: FDA-Public Use
  Company Number: US-MERCK-1012USA03783

PATIENT
  Sex: Female

DRUGS (2)
  1. FOSAMAX [Suspect]
     Route: 048
     Dates: start: 20050101, end: 20080101
  2. FOSAMAX [Suspect]
     Route: 048
     Dates: start: 20080201, end: 20090101

REACTIONS (4)
  - BONE DENSITY DECREASED [None]
  - FEMUR FRACTURE [None]
  - OSTEOPOROSIS [None]
  - STRESS FRACTURE [None]
